FAERS Safety Report 15422434 (Version 1)
Quarter: 2018Q3

REPORT INFORMATION
  Report Type: Other
  Country: DK (occurrence: DK)
  Receive Date: 20180925
  Receipt Date: 20180925
  Transmission Date: 20181010
  Serious: Yes (Other)
  Sender: FDA-Public Use
  Company Number: DK-DENTSPLY-2018SCDP000433

PATIENT
  Age: 50 Year
  Sex: Male
  Weight: 116 kg

DRUGS (2)
  1. LEDERSPAN [Suspect]
     Active Substance: TRIAMCINOLONE HEXACETONIDE
     Indication: MUSCULOSKELETAL PAIN
     Dosage: THE PATIENT HAS RECEIVED THE BLOCKADE ON 20?APR?2015, 16?JUN?2015 AND JANUARY 2016.
     Route: 014
     Dates: start: 20150420, end: 201601
  2. XYLOCAINE [Suspect]
     Active Substance: LIDOCAINE HYDROCHLORIDE
     Indication: MUSCULOSKELETAL PAIN
     Dosage: 1 DF, UNK
     Route: 014
     Dates: start: 20150420, end: 201601

REACTIONS (6)
  - Fatigue [Recovered/Resolved]
  - Blood glucose increased [None]
  - Type 2 diabetes mellitus [None]
  - Weight decreased [Recovered/Resolved]
  - Thirst [Recovered/Resolved]
  - Pollakiuria [Recovered/Resolved]

NARRATIVE: CASE EVENT DATE: 2015
